FAERS Safety Report 13410699 (Version 1)
Quarter: 2017Q2

REPORT INFORMATION
  Report Type: Spontaneous
  Country: TN (occurrence: TN)
  Receive Date: 20170406
  Receipt Date: 20170406
  Transmission Date: 20170830
  Serious: Yes (Death)
  Sender: FDA-Public Use
  Company Number: TN-PFIZER INC-2017130102

PATIENT
  Age: 52 Year
  Sex: Male

DRUGS (4)
  1. IMIPENEM [Suspect]
     Active Substance: IMIPENEM
     Dosage: UNK
  2. DOXYCYCLINE MONOHYDRATE [Suspect]
     Active Substance: DOXYCYCLINE
     Indication: RICKETTSIALPOX
     Dosage: 200 MG, (PER 24 HOURS)
  3. VANCOMYCIN [Suspect]
     Active Substance: VANCOMYCIN
     Dosage: UNK
  4. NORADRENALINE HYDROCHLORIDE [Concomitant]
     Active Substance: NORADRENALINE HYDROCHLORIDE
     Indication: SEPTIC SHOCK
     Dosage: UNK

REACTIONS (1)
  - Drug ineffective [Fatal]
